FAERS Safety Report 9415605 (Version 2)
Quarter: 2013Q3

REPORT INFORMATION
  Report Type: Report from Study
  Country: US (occurrence: US)
  Receive Date: 20130723
  Receipt Date: 20130726
  Transmission Date: 20140515
  Serious: Yes (Hospitalization)
  Sender: FDA-Public Use
  Company Number: US-PURDUE-USA-2013-0104666

PATIENT
  Age: 16 Year
  Sex: Female

DRUGS (4)
  1. MS CONTIN TABLETS [Suspect]
     Indication: SICKLE CELL ANAEMIA
     Dosage: UNK
     Route: 048
     Dates: end: 20110308
  2. IBUPROFEN [Suspect]
     Indication: SICKLE CELL ANAEMIA
     Dosage: UNK
     Dates: end: 20110308
  3. PNEUMOCOCCAL CONJUGATE VACCINE [Suspect]
     Indication: IMMUNISATION
     Dosage: 1 DF, UNK
     Route: 030
     Dates: start: 20101110, end: 20111110
  4. FOLIC ACID [Concomitant]
     Indication: SICKLE CELL ANAEMIA

REACTIONS (11)
  - Overdose [Recovered/Resolved]
  - Respiratory failure [Recovered/Resolved]
  - Hypocalcaemia [Recovered/Resolved]
  - Unresponsive to stimuli [Recovered/Resolved]
  - Renal failure [Recovered/Resolved]
  - Acute chest syndrome [Recovered/Resolved]
  - Metabolic acidosis [Unknown]
  - Hypotension [Unknown]
  - Urine output decreased [Unknown]
  - Somnolence [Unknown]
  - Sedation [Unknown]
